FAERS Safety Report 4961071-7 (Version None)
Quarter: 2006Q1

REPORT INFORMATION
  Report Type: 
  Country: None (occurrence: None)
  Receive Date: 20060327
  Receipt Date: 20060317
  Transmission Date: 20060701
  Serious: Yes (Hospitalization, Other)
  Sender: FDA-Public Use
  Company Number: 200610929BWH

PATIENT
  Age: 61 Year
  Sex: Female

DRUGS (8)
  1. NEXAVAR [Suspect]
     Indication: RENAL CELL CARCINOMA STAGE UNSPECIFIED
     Dosage: 400 MG, BID, ORAL
     Route: 048
     Dates: start: 20060202, end: 20060209
  2. INSULIN [Concomitant]
  3. NORVASC [Concomitant]
  4. HYDROCODONE [Concomitant]
  5. COSOPT [Concomitant]
  6. HYDROCHLOROTHIAZIDE [Concomitant]
  7. LASIX [Concomitant]
  8. GLYBURIDE [Concomitant]

REACTIONS (4)
  - BLOOD CREATININE INCREASED [None]
  - BLOOD GLUCOSE INCREASED [None]
  - DERMATITIS [None]
  - STOMATITIS [None]
